FAERS Safety Report 21959675 (Version 1)
Quarter: 2023Q1

REPORT INFORMATION
  Report Type: Spontaneous
  Country: FR (occurrence: FR)
  Receive Date: 20230206
  Receipt Date: 20230206
  Transmission Date: 20230418
  Serious: Yes (Other)
  Sender: FDA-Public Use
  Company Number: FR-DPOCBCP-15JANV2023-01

PATIENT
  Sex: Female

DRUGS (1)
  1. NEXPLANON [Suspect]
     Active Substance: ETONOGESTREL
     Dosage: 1 IMPLANT IN LEFT ARM; AND THE PLANNED REMOVAL DATE INDICATED ON THE PATIENT CARD IS 24-AUG-2023
     Route: 059
     Dates: start: 20200824

REACTIONS (5)
  - Menometrorrhagia [Unknown]
  - Chlamydial infection [Unknown]
  - Amenorrhoea [Recovered/Resolved]
  - Coital bleeding [Unknown]
  - Pain in extremity [Recovered/Resolved]

NARRATIVE: CASE EVENT DATE: 20200101
